FAERS Safety Report 22097006 (Version 4)
Quarter: 2023Q2

REPORT INFORMATION
  Report Type: Spontaneous
  Country: US (occurrence: US)
  Receive Date: 20230315
  Receipt Date: 20230622
  Transmission Date: 20230721
  Serious: Yes (Hospitalization, Other)
  Sender: FDA-Public Use
  Company Number: US-BRISTOL-MYERS SQUIBB COMPANY-2023-033728

PATIENT
  Age: 72 Year
  Sex: Female

DRUGS (5)
  1. REVLIMID [Suspect]
     Active Substance: LENALIDOMIDE
     Indication: Myelodysplastic syndrome
     Dosage: 10MG DAILY FOR 21 DAYS
     Route: 048
     Dates: start: 20230215, end: 20230302
  2. REVLIMID [Suspect]
     Active Substance: LENALIDOMIDE
     Dosage: FREQUENCY- OTHER
     Route: 048
     Dates: start: 202302
  3. ASPIRIN [Concomitant]
     Active Substance: ASPIRIN
     Indication: Product used for unknown indication
     Route: 048
  4. PLAVIX [Concomitant]
     Active Substance: CLOPIDOGREL BISULFATE
     Indication: Product used for unknown indication
     Route: 048
  5. DILTIAZEM [Concomitant]
     Active Substance: DILTIAZEM
     Indication: Product used for unknown indication
     Route: 048

REACTIONS (8)
  - Red blood cell count decreased [Unknown]
  - Insomnia [Unknown]
  - Fatigue [Unknown]
  - Anaemia [Recovered/Resolved]
  - Gout [Unknown]
  - Pain [Unknown]
  - Ecchymosis [Unknown]
  - Neutropenia [Recovered/Resolved]

NARRATIVE: CASE EVENT DATE: 20230302
